FAERS Safety Report 23733024 (Version 2)
Quarter: 2024Q2

REPORT INFORMATION
  Report Type: Spontaneous
  Country: JP (occurrence: JP)
  Receive Date: 20240411
  Receipt Date: 20240624
  Transmission Date: 20240716
  Serious: Yes (Hospitalization)
  Sender: FDA-Public Use
  Company Number: JP-TEVA-VS-3180847

PATIENT
  Age: 70 Year
  Sex: Male
  Weight: 60 kg

DRUGS (2)
  1. TRISENOX [Suspect]
     Active Substance: ARSENIC TRIOXIDE
     Indication: Acute promyelocytic leukaemia
     Route: 041
  2. VESANOID(TRETINOIN) [Concomitant]
     Indication: Acute promyelocytic leukaemia

REACTIONS (6)
  - Pneumonia [Unknown]
  - Acute respiratory distress syndrome [Unknown]
  - Differentiation syndrome [Unknown]
  - Acute kidney injury [Unknown]
  - Acidosis [Unknown]
  - Electrolyte imbalance [Unknown]
